FAERS Safety Report 14479395 (Version 2)
Quarter: 2018Q2

REPORT INFORMATION
  Report Type: Spontaneous
  Country: US (occurrence: US)
  Receive Date: 20180202
  Receipt Date: 20180622
  Transmission Date: 20180711
  Serious: Yes (Hospitalization, Other)
  Sender: FDA-Public Use
  Company Number: US-ASTRAZENECA-2018SE07795

PATIENT
  Age: 548 Month
  Sex: Female

DRUGS (11)
  1. PREDNISONE. [Concomitant]
     Active Substance: PREDNISONE
  2. XGEVA [Concomitant]
     Active Substance: DENOSUMAB
     Dosage: 120 MG/1.7 VIAL
  3. NORCO [Concomitant]
     Active Substance: ACETAMINOPHEN\HYDROCODONE BITARTRATE
     Dosage: 5 MG-325MG
  4. TAGRISSO [Suspect]
     Active Substance: OSIMERTINIB
     Indication: NON-SMALL CELL LUNG CANCER
     Route: 048
     Dates: start: 20171213
  5. DICYCLOMINE [Concomitant]
     Active Substance: DICYCLOMINE HYDROCHLORIDE
  6. LIALDA [Concomitant]
     Active Substance: MESALAMINE
     Dosage: 1.2 G
  7. MULTIVITAMINS [Concomitant]
     Active Substance: VITAMINS
  8. LOVENOX [Concomitant]
     Active Substance: ENOXAPARIN SODIUM
  9. ASPIRIN. [Concomitant]
     Active Substance: ASPIRIN
  10. CALTRATE [Concomitant]
     Active Substance: CALCIUM CARBONATE
  11. CALTRATE [Concomitant]
     Active Substance: CALCIUM CARBONATE
     Dosage: 600

REACTIONS (6)
  - Aphasia [Recovered/Resolved]
  - Cerebrovascular accident [Recovered/Resolved]
  - Onychomadesis [Unknown]
  - Paralysis [Recovered/Resolved]
  - Deep vein thrombosis [Recovering/Resolving]
  - Thrombosis [Unknown]

NARRATIVE: CASE EVENT DATE: 201805
